FAERS Safety Report 9947330 (Version 1)
Quarter: 2014Q1

REPORT INFORMATION
  Report Type: Spontaneous
  Country: US (occurrence: US)
  Receive Date: 20140303
  Receipt Date: 20140303
  Transmission Date: 20141002
  Serious: No
  Sender: FDA-Public Use
  Company Number: US-ABBVIE-13P-163-1062249-00

PATIENT
  Age: 9 Year
  Sex: Male
  Weight: 42.68 kg

DRUGS (4)
  1. HUMIRA [Suspect]
     Indication: CROHN^S DISEASE
     Dosage: ONCE
     Dates: start: 20130225, end: 20130225
  2. HUMIRA [Suspect]
     Dates: start: 20130309
  3. METHOTREXATE [Concomitant]
     Indication: CROHN^S DISEASE
     Dates: start: 2012
  4. PREDNISONE [Concomitant]
     Indication: CROHN^S DISEASE
     Dosage: WEANING DOWN

REACTIONS (1)
  - Off label use [Not Recovered/Not Resolved]
